FAERS Safety Report 7142120-7 (Version None)
Quarter: 2010Q4

REPORT INFORMATION
  Report Type: 
  Country: None (occurrence: None)
  Receive Date: 20101207
  Receipt Date: 20101202
  Transmission Date: 20110411
  Serious: Yes (Death, Hospitalization)
  Sender: FDA-Public Use
  Company Number: FR-BRISTOL-MYERS SQUIBB COMPANY-15422405

PATIENT
  Age: 70 Year
  Sex: Male

DRUGS (6)
  1. GLUCOPHAGE [Suspect]
     Indication: TYPE 2 DIABETES MELLITUS
     Route: 048
  2. PREVISCAN [Concomitant]
  3. BISOPROLOL [Concomitant]
  4. KARDEGIC [Concomitant]
  5. LASILIX [Concomitant]
  6. PRAVASTATIN SODIUM [Concomitant]

REACTIONS (4)
  - ACUTE CORONARY SYNDROME [None]
  - HYPERKALAEMIA [None]
  - LACTIC ACIDOSIS [None]
  - RENAL FAILURE ACUTE [None]
